FAERS Safety Report 9994730 (Version 1)
Quarter: 2014Q1

REPORT INFORMATION
  Report Type: Spontaneous
  Country: US (occurrence: None)
  Receive Date: 20140307
  Receipt Date: 20140307
  Transmission Date: 20141002
  Serious: Yes (Hospitalization)
  Sender: FDA-Public Use
  Company Number: None

PATIENT
  Age: 61 Year
  Sex: Male

DRUGS (5)
  1. DECITABINE [Suspect]
     Indication: MYELODYSPLASTIC SYNDROME
     Dosage: 20MG/M2; QDX10; 28DAYCYCLE
     Dates: start: 20140226
  2. ALLOPURINOL [Concomitant]
  3. ACYCLOVIR [Concomitant]
  4. LEVOFLOXACIN [Concomitant]
  5. FLUCANAZOLE [Concomitant]

REACTIONS (3)
  - Chills [None]
  - Sinus congestion [None]
  - Febrile neutropenia [None]
